FAERS Safety Report 9771961 (Version 1)
Quarter: 2013Q4

REPORT INFORMATION
  Report Type: Report from Study
  Country: US (occurrence: US)
  Receive Date: 20131219
  Receipt Date: 20131219
  Transmission Date: 20140711
  Serious: Yes (Death)
  Sender: FDA-Public Use
  Company Number: US-ROCHE-1322163

PATIENT
  Age: 63 Year
  Sex: Male

DRUGS (5)
  1. AVASTIN [Suspect]
     Indication: RECTAL CANCER
     Dosage: START DATE: 20/JUN/2012
     Route: 042
  2. ERBITUX [Concomitant]
     Dosage: START DATE: 20/JUN/2012
     Route: 042
  3. HYDROCORTISONE [Concomitant]
     Dosage: START DATE: 20/JUN/2012
     Route: 042
  4. EPINEPHRINE [Concomitant]
     Dosage: START DATE: 20/JUN/2012
     Route: 058
  5. BENADRYL (UNITED STATES) [Concomitant]
     Dosage: START DATE: 20/JUN/2012
     Route: 042

REACTIONS (1)
  - Death [Fatal]
